FAERS Safety Report 8637127 (Version 4)
Quarter: 2014Q2

REPORT INFORMATION
  Report Type: Spontaneous
  Country: US (occurrence: US)
  Receive Date: 20120627
  Receipt Date: 20140415
  Transmission Date: 20141212
  Serious: Yes (Hospitalization)
  Sender: FDA-Public Use
  Company Number: US-ASTRAZENECA-2012SE35659

PATIENT
  Age: 57 Year
  Sex: Female

DRUGS (24)
  1. NEXIUM [Suspect]
     Indication: GASTROOESOPHAGEAL REFLUX DISEASE
     Route: 048
     Dates: start: 2000, end: 2010
  2. NEXIUM [Suspect]
     Indication: GASTROOESOPHAGEAL REFLUX DISEASE
     Route: 048
     Dates: start: 20030414, end: 20101230
  3. NEXIUM [Suspect]
     Indication: GASTROOESOPHAGEAL REFLUX DISEASE
     Route: 048
     Dates: start: 20030414
  4. PRILOSEC [Suspect]
     Indication: GASTROOESOPHAGEAL REFLUX DISEASE
     Route: 048
     Dates: start: 2004, end: 2005
  5. PRILOSEC [Suspect]
     Indication: GASTROOESOPHAGEAL REFLUX DISEASE
     Route: 048
     Dates: start: 20080328
  6. PREVACID [Concomitant]
     Indication: GASTROOESOPHAGEAL REFLUX DISEASE
     Dates: start: 2000
  7. PREVACID [Concomitant]
     Indication: GASTROOESOPHAGEAL REFLUX DISEASE
     Dates: start: 20030312, end: 20060721
  8. ZANTAC [Concomitant]
     Dates: start: 2011
  9. METOPROLOL SUCCINATE [Concomitant]
     Route: 048
     Dates: start: 20101229
  10. BYSTOLIC [Concomitant]
     Route: 048
     Dates: start: 20110121
  11. LOSARTAN/HCTZ [Concomitant]
     Dosage: 50/12.5 MG, DAILY
     Route: 048
     Dates: start: 20110121
  12. PROTONIX [Concomitant]
     Indication: GASTROOESOPHAGEAL REFLUX DISEASE
     Route: 048
     Dates: start: 20060614, end: 20060714
  13. SUCRALFATE [Concomitant]
     Route: 048
     Dates: start: 20060823
  14. METOCLOPRAMIDE [Concomitant]
     Route: 048
     Dates: start: 20060615
  15. CLONAZEPAM [Concomitant]
     Route: 048
     Dates: start: 20060615
  16. SIMVASTATIN [Concomitant]
     Route: 048
     Dates: start: 20070308
  17. LEVAQUIN [Concomitant]
     Route: 048
     Dates: start: 20070316
  18. DETROL [Concomitant]
     Route: 048
     Dates: start: 20070306
  19. ZEGERID [Concomitant]
     Indication: GASTROOESOPHAGEAL REFLUX DISEASE
     Dates: start: 20110220, end: 20110310
  20. RABEPRAZOLE [Concomitant]
     Indication: GASTROOESOPHAGEAL REFLUX DISEASE
     Dates: start: 20080618, end: 20080718
  21. CALCIUM [Concomitant]
     Indication: OSTEOPOROSIS
  22. VITAMIN D [Concomitant]
  23. MULTIVITAMIN [Concomitant]
  24. FISH OIL [Concomitant]

REACTIONS (9)
  - Osteoporosis [Unknown]
  - Multiple fractures [Unknown]
  - Bone disorder [Unknown]
  - Calcium deficiency [Unknown]
  - Arthritis [Unknown]
  - Rheumatoid arthritis [Unknown]
  - Vitamin D deficiency [Unknown]
  - Osteopenia [Unknown]
  - Limb injury [Unknown]
